FAERS Safety Report 5630580-X (Version None)
Quarter: 2008Q1

REPORT INFORMATION
  Report Type: 
  Country: None (occurrence: None)
  Receive Date: 20080219
  Receipt Date: 20080213
  Transmission Date: 20080703
  Serious: Yes (Other)
  Sender: FDA-Public Use
  Company Number: B0499386B

PATIENT
  Age: 34 Month
  Sex: Female
  Weight: 11 kg

DRUGS (3)
  1. ZIDOVUDINE [Suspect]
     Indication: HIV INFECTION
     Dosage: 200MG TWICE PER DAY
     Route: 048
     Dates: start: 20070614
  2. LAMIVUDINE [Suspect]
     Indication: HIV INFECTION
     Dosage: 80MG TWICE PER DAY
     Route: 048
     Dates: start: 20070614
  3. NEVIRAPINE [Suspect]
     Indication: HIV INFECTION
     Dosage: 200MG TWICE PER DAY
     Route: 048
     Dates: start: 20070614

REACTIONS (7)
  - DIARRHOEA [None]
  - HYPOKALAEMIA [None]
  - HYPOTONIA [None]
  - KWASHIORKOR [None]
  - MALAISE [None]
  - OEDEMA PERIPHERAL [None]
  - VOMITING [None]
